FAERS Safety Report 15845344 (Version 1)
Quarter: 2019Q1

REPORT INFORMATION
  Report Type: Spontaneous
  Country: CN (occurrence: CN)
  Receive Date: 20190119
  Receipt Date: 20190119
  Transmission Date: 20190417
  Serious: Yes (Other)
  Sender: FDA-Public Use
  Company Number: CN-SUN PHARMACEUTICAL INDUSTRIES LTD-2019R1-196352

PATIENT
  Age: 22 Year
  Sex: Male

DRUGS (3)
  1. AZITHROMYCIN ANHYDROUS. [Suspect]
     Active Substance: AZITHROMYCIN ANHYDROUS
     Indication: APPENDICEAL ABSCESS
     Dosage: UNK
     Route: 065
  2. ORNIDAZOLE [Suspect]
     Active Substance: ORNIDAZOLE
     Indication: APPENDICEAL ABSCESS
     Dosage: UNK
     Route: 065
  3. SULBACTAM [Suspect]
     Active Substance: SULBACTAM
     Indication: APPENDICEAL ABSCESS
     Dosage: UNK
     Route: 065

REACTIONS (1)
  - Treatment failure [Unknown]
